FAERS Safety Report 14208643 (Version 1)
Quarter: 2017Q4

REPORT INFORMATION
  Report Type: Spontaneous
  Country: US (occurrence: None)
  Receive Date: 20171121
  Receipt Date: 20171121
  Transmission Date: 20180321
  Serious: No
  Sender: FDA-Public Use
  Company Number: None

PATIENT
  Sex: Male
  Weight: 90.72 kg

DRUGS (2)
  1. XELJANZ XR [Suspect]
     Active Substance: TOFACITINIB CITRATE
     Indication: RHEUMATOID ARTHRITIS
     Route: 048
     Dates: start: 201708
  2. PREDNISONE UNKNOWN UNKNOWN [Suspect]
     Active Substance: PREDNISONE

REACTIONS (3)
  - Pain [None]
  - Peripheral swelling [None]
  - Gait inability [None]
